FAERS Safety Report 11558960 (Version 1)
Quarter: 2015Q3

REPORT INFORMATION
  Report Type: Report from Study
  Country: CA (occurrence: CA)
  Receive Date: 20150928
  Receipt Date: 20150928
  Transmission Date: 20151125
  Serious: Yes (Other)
  Sender: FDA-Public Use
  Company Number: CA-BAYER-2015-416542

PATIENT
  Age: 77 Year
  Sex: Male

DRUGS (2)
  1. HYDROMORPH CONTIN [Concomitant]
     Active Substance: HYDROMORPHONE
  2. STIVARGA [Suspect]
     Active Substance: REGORAFENIB
     Indication: COLORECTAL CANCER METASTATIC
     Dosage: 120 MG, QD
     Route: 048
     Dates: start: 20150827, end: 20150906

REACTIONS (3)
  - Gait disturbance [Recovering/Resolving]
  - Pain in extremity [None]
  - Balance disorder [Recovering/Resolving]

NARRATIVE: CASE EVENT DATE: 20150906
